FAERS Safety Report 17820794 (Version 2)
Quarter: 2020Q2

REPORT INFORMATION
  Report Type: Spontaneous
  Country: JP (occurrence: JP)
  Receive Date: 20200525
  Receipt Date: 20200602
  Transmission Date: 20200714
  Serious: Yes (Other)
  Sender: FDA-Public Use
  Company Number: JP-PFIZER INC-2020202290

PATIENT
  Age: 78 Year
  Sex: Male
  Weight: 57 kg

DRUGS (15)
  1. LOPINAVIR/RITONAVIR [Concomitant]
     Active Substance: LOPINAVIR\RITONAVIR
     Route: 048
  2. NICORANDIL [Concomitant]
     Active Substance: NICORANDIL
  3. DEXMEDETOMIDINE HYDROCHLORIDE. [Suspect]
     Active Substance: DEXMEDETOMIDINE HYDROCHLORIDE
     Indication: SEDATION
     Dosage: UNK
  4. AZOSEMIDE [Concomitant]
     Active Substance: AZOSEMIDE
  5. CARVEDILOL. [Concomitant]
     Active Substance: CARVEDILOL
  6. FAVIPIRAVIR [Concomitant]
     Active Substance: FAVIPIRAVIR
     Dosage: 1600 MG, DAILY
  7. CEFTRIAXONE. [Concomitant]
     Active Substance: CEFTRIAXONE
     Route: 042
  8. BEPRIDIL HYDROCHLORIDE MONOHYDRATE [Concomitant]
     Active Substance: BEPRIDIL HYDROCHLORIDE
  9. LANSOPRAZOLE. [Concomitant]
     Active Substance: LANSOPRAZOLE
  10. AZITHROMYCIN ANHYDROUS. [Suspect]
     Active Substance: AZITHROMYCIN ANHYDROUS
     Dosage: UNK
     Route: 048
  11. APIXABAN [Concomitant]
     Active Substance: APIXABAN
     Dosage: UNK
  12. URSODEOXYCHOLIC ACID [Concomitant]
     Active Substance: URSODIOL
  13. FAVIPIRAVIR [Concomitant]
     Active Substance: FAVIPIRAVIR
     Indication: COVID-19 PNEUMONIA
     Dosage: 3600 MG, DAILY
  14. METILDIGOXIN [Concomitant]
     Active Substance: METILDIGOXIN
  15. CICLESONIDE [Concomitant]
     Active Substance: CICLESONIDE
     Dosage: 800 UG, DAILY
     Route: 048

REACTIONS (2)
  - Electrocardiogram QT prolonged [Recovered/Resolved]
  - Bradycardia [Recovered/Resolved]
